FAERS Safety Report 4915697-7 (Version None)
Quarter: 2006Q1

REPORT INFORMATION
  Report Type: 
  Country: None (occurrence: None)
  Receive Date: 20060214
  Receipt Date: 20060203
  Transmission Date: 20060701
  Serious: Yes (Other)
  Sender: FDA-Public Use
  Company Number: 2006017204

PATIENT
  Age: 77 Year
  Sex: Female
  Weight: 66.6788 kg

DRUGS (4)
  1. ROGAINE [Suspect]
     Indication: ALOPECIA
     Dosage: TWICE DAILY, TOPICAL
     Route: 061
     Dates: start: 20050101
  2. FISH OIL (FISH OIL) [Concomitant]
  3. CALCIUM (CALCIUM) [Concomitant]
  4. MULTIVITAMINS (ASCORBIC ACID, ERGOCALCIFEROL, FOLIC ACID, NICOTINAMIDE [Concomitant]

REACTIONS (2)
  - ATRIAL FIBRILLATION [None]
  - DRUG INEFFECTIVE [None]
